FAERS Safety Report 19794230 (Version 1)
Quarter: 2021Q3

REPORT INFORMATION
  Report Type: Spontaneous
  Country: US (occurrence: US)
  Receive Date: 20210907
  Receipt Date: 20210907
  Transmission Date: 20211014
  Serious: Yes (Life-Threatening, Hospitalization)
  Sender: FDA-Public Use
  Company Number: US-LUPIN PHARMACEUTICALS INC.-2021-16541

PATIENT
  Sex: Female

DRUGS (26)
  1. FUROSEMIDE. [Concomitant]
     Active Substance: FUROSEMIDE
     Indication: FLUID OVERLOAD
     Dosage: UNK
     Route: 065
  2. DOPAMINE [Concomitant]
     Active Substance: DOPAMINE HYDROCHLORIDE
     Indication: HYPOTENSION
     Dosage: 20 MICROGRAM/KILOGRAM PR MINUTE
     Route: 042
  3. HEPARIN [Concomitant]
     Active Substance: HEPARIN SODIUM
     Dosage: 22?28  UNITS/KG/MIN
     Route: 065
  4. CEFEPIME [Concomitant]
     Active Substance: CEFEPIME HYDROCHLORIDE
     Indication: SEPSIS
  5. ALBUTEROL SULFATE. [Suspect]
     Active Substance: ALBUTEROL SULFATE
     Indication: ENTEROBACTER PNEUMONIA
  6. HYDROCORTISONE. [Suspect]
     Active Substance: HYDROCORTISONE
     Indication: NEWBORN PERSISTENT PULMONARY HYPERTENSION
     Dosage: UNK
     Route: 065
  7. EPINEPHRINE. [Concomitant]
     Active Substance: EPINEPHRINE
     Indication: BRADYCARDIA
     Dosage: 1 DOSAGE FORM
     Route: 042
  8. CEFEPIME [Concomitant]
     Active Substance: CEFEPIME HYDROCHLORIDE
     Indication: ENTEROBACTER INFECTION
     Dosage: UNK
     Route: 065
  9. FRESH FROZEN PLASMA [Concomitant]
     Active Substance: HUMAN PLASMA
     Dosage: 10 MILLILITRE PER KILOGRAM, TID (EVERY EIGHT HOURS FOR THE FIRST 24 HOURS)
     Route: 065
  10. VASOPRESSIN. [Concomitant]
     Active Substance: VASOPRESSIN
     Indication: HYPOTENSION
     Dosage: UNK 80 MILLIUNITS/KG/HOUR
     Route: 065
  11. HEPARIN [Concomitant]
     Active Substance: HEPARIN SODIUM
     Dosage: 15?28 UNITS/KG/MIN
     Route: 065
  12. HEPARIN [Concomitant]
     Active Substance: HEPARIN SODIUM
     Indication: ANTICOAGULANT THERAPY
     Dosage: 17?28 UNITS/KG/MIN
     Route: 065
  13. HEPARIN [Concomitant]
     Active Substance: HEPARIN SODIUM
     Dosage: 15?18 UNITS/KG/MIN
     Route: 065
  14. HEPARIN [Concomitant]
     Active Substance: HEPARIN SODIUM
     Dosage: 22?28  UNITS/KG/MIN
     Route: 065
  15. HEPARIN [Concomitant]
     Active Substance: HEPARIN SODIUM
     Dosage: 22?28  UNITS/KG/MIN
     Route: 065
  16. MILRINONE [Concomitant]
     Active Substance: MILRINONE
     Indication: VENTRICULAR DYSFUNCTION
     Dosage: UNK
     Route: 065
  17. DORNASE ALFA. [Suspect]
     Active Substance: DORNASE ALFA
     Indication: ENTEROBACTER PNEUMONIA
  18. HEPARIN [Concomitant]
     Active Substance: HEPARIN SODIUM
     Dosage: 25?31  UNITS/KG/MIN
     Route: 065
  19. NITRIC OXIDE. [Suspect]
     Active Substance: NITRIC OXIDE
     Indication: NEWBORN PERSISTENT PULMONARY HYPERTENSION
     Dosage: UNK
  20. HEPARIN [Concomitant]
     Active Substance: HEPARIN SODIUM
     Dosage: 22?28  UNITS/KG/MIN
     Route: 065
  21. ALBUTEROL SULFATE. [Suspect]
     Active Substance: ALBUTEROL SULFATE
     Indication: PULMONARY HAEMORRHAGE
     Dosage: UNK UNK, BID, TWICE DAILY FOR 48 HOURS
     Route: 065
  22. CEFOTAXIME [Suspect]
     Active Substance: CEFOTAXIME SODIUM
     Indication: SEPSIS
     Dosage: UNK
     Route: 065
  23. DORNASE ALFA. [Suspect]
     Active Substance: DORNASE ALFA
     Indication: PULMONARY HAEMORRHAGE
     Dosage: 1.25 MILLIGRAM
     Route: 065
  24. FRESH FROZEN PLASMA [Concomitant]
     Active Substance: HUMAN PLASMA
     Indication: COAGULOPATHY
     Dosage: 30 MILLILITRE PER KILOGRAM
     Route: 065
  25. DOBUTAMINE [Concomitant]
     Active Substance: DOBUTAMINE HYDROCHLORIDE
     Indication: HYPOTENSION
     Dosage: 20 MICROGRAM/KILOGRAM
     Route: 042
  26. HEPARIN [Concomitant]
     Active Substance: HEPARIN SODIUM
     Dosage: 15?27  UNITS/KG/MIN
     Route: 065

REACTIONS (2)
  - Off label use [Unknown]
  - Drug ineffective [Unknown]
